FAERS Safety Report 4975409-8 (Version None)
Quarter: 2006Q2

REPORT INFORMATION
  Report Type: 
  Country: None (occurrence: None)
  Receive Date: 20060411
  Receipt Date: 20060329
  Transmission Date: 20061013
  Serious: Yes (Hospitalization)
  Sender: FDA-Public Use
  Company Number: 2005144078

PATIENT
  Age: 75 Year
  Sex: Male

DRUGS (7)
  1. CLINDAMYCIN HCL [Suspect]
     Indication: OSTEOMYELITIS
     Dosage: (300 MG), ORAL
     Route: 048
     Dates: start: 20050929, end: 20051012
  2. ZESTRIL [Concomitant]
  3. ZOCOR [Concomitant]
  4. IMOVANE (ZOPICLONE) [Concomitant]
  5. DIURAL (FUROSEMIDE) [Concomitant]
  6. CENTYL (BENDROFLUMETHIAZIDE) [Concomitant]
  7. ALBYL-E (ACETYLSALICYLIC ACID, MAGNESIUM OXIDE) [Concomitant]

REACTIONS (9)
  - ASPIRATION [None]
  - CAUSTIC INJURY [None]
  - DYSPHAGIA [None]
  - FOREIGN BODY TRAUMA [None]
  - PHARYNGEAL ERYTHEMA [None]
  - PHARYNGEAL OEDEMA [None]
  - PHARYNGEAL ULCERATION [None]
  - PHARYNGOLARYNGEAL PAIN [None]
  - VIRAL INFECTION [None]
